FAERS Safety Report 7089996-X (Version None)
Quarter: 2010Q4

REPORT INFORMATION
  Report Type: 
  Country: None (occurrence: None)
  Receive Date: 20101109
  Receipt Date: 20101102
  Transmission Date: 20110411
  Serious: Yes (Hospitalization)
  Sender: FDA-Public Use
  Company Number: US-BIOGENIDEC-2010BI034008

PATIENT
  Age: 60 Year
  Sex: Male
  Weight: 74 kg

DRUGS (7)
  1. AVONEX [Suspect]
     Indication: MULTIPLE SCLEROSIS
     Route: 030
     Dates: start: 19970101, end: 19981201
  2. PREDNISONE [Concomitant]
     Indication: MULTIPLE SCLEROSIS
     Dates: end: 19980101
  3. SOLU-MEDROL [Concomitant]
     Indication: MULTIPLE SCLEROSIS
     Dates: end: 19980101
  4. MUSCLE RELAXER (NOS) [Concomitant]
     Indication: MUSCLE SPASMS
  5. EPILEPTIC MEDICATION (NOS) [Concomitant]
     Indication: MUSCLE SPASMS
  6. NEURONTIN [Concomitant]
     Indication: NEUROPATHY PERIPHERAL
  7. MEDICATION (NOS) [Concomitant]
     Indication: NEUROPATHY PERIPHERAL

REACTIONS (8)
  - COMA [None]
  - DECUBITUS ULCER [None]
  - GENERAL SYMPTOM [None]
  - HEPATIC FAILURE [None]
  - HERPES ZOSTER [None]
  - NEPHROPATHY TOXIC [None]
  - WEIGHT DECREASED [None]
  - WEIGHT INCREASED [None]
